FAERS Safety Report 8104549-X (Version None)
Quarter: 2012Q1

REPORT INFORMATION
  Report Type: 
  Country: None (occurrence: None)
  Receive Date: 20120201
  Receipt Date: 20120130
  Transmission Date: 20120608
  Serious: Yes (Other)
  Sender: FDA-Public Use
  Company Number: GB-MERCK-1201GBR00100

PATIENT
  Age: 64 Year
  Sex: Male
  Weight: 88 kg

DRUGS (5)
  1. VALSARTAN [Concomitant]
     Route: 065
     Dates: start: 20111010
  2. AMLODIPINE [Concomitant]
     Route: 065
     Dates: start: 20111010
  3. TAMSULOSIN HYDROCHLORIDE [Concomitant]
     Route: 065
     Dates: start: 20111010
  4. ZETIA [Suspect]
     Route: 048
     Dates: start: 20111207
  5. LANSOPRAZOLE [Concomitant]
     Route: 065
     Dates: start: 20111010

REACTIONS (2)
  - DYSPEPSIA [None]
  - GASTROOESOPHAGEAL REFLUX DISEASE [None]
